FAERS Safety Report 7296242-0 (Version None)
Quarter: 2011Q1

REPORT INFORMATION
  Report Type: 
  Country: None (occurrence: None)
  Receive Date: 20110216
  Receipt Date: 20110207
  Transmission Date: 20110831
  Serious: Yes (Death)
  Sender: FDA-Public Use
  Company Number: JP-AMGEN-JPNCT2010011761

PATIENT
  Age: 63 Year
  Sex: Male
  Weight: 47 kg

DRUGS (5)
  1. PANITUMUMAB [Suspect]
  2. ERBITUX [Concomitant]
     Indication: COLORECTAL CANCER
     Route: 041
     Dates: start: 20100701, end: 20100801
  3. OXYCONTIN [Concomitant]
     Dosage: UNK
     Route: 048
  4. PANITUMUMAB [Suspect]
     Indication: COLORECTAL CANCER
     Dosage: 6 MG/KG, Q2WK
     Route: 041
     Dates: start: 20100826, end: 20100924
  5. OXINORM                            /00045603/ [Concomitant]
     Dosage: UNK
     Route: 048

REACTIONS (3)
  - DERMATITIS ACNEIFORM [None]
  - PARONYCHIA [None]
  - COLORECTAL CANCER [None]
